FAERS Safety Report 8218977-5 (Version None)
Quarter: 2012Q1

REPORT INFORMATION
  Report Type: 
  Country: None (occurrence: None)
  Receive Date: 20120319
  Receipt Date: 20120313
  Transmission Date: 20120608
  Serious: Yes (Hospitalization)
  Sender: FDA-Public Use
  Company Number: ES-MERCK-1203ESP00015

PATIENT
  Age: 60 Year
  Sex: Female

DRUGS (5)
  1. OMEPRAZOLE [Concomitant]
     Route: 048
  2. MAXALT-MLT [Suspect]
     Indication: HEADACHE
     Route: 048
     Dates: start: 20111025, end: 20111108
  3. CALCIUM CARBONATE AND CALCIUM LACTATE GLUCONATE [Concomitant]
     Route: 048
  4. MELOXICAM [Concomitant]
     Route: 048
  5. ZOCOR [Concomitant]
     Route: 048

REACTIONS (2)
  - PERICARDITIS [None]
  - CARDIAC TAMPONADE [None]
